FAERS Safety Report 5022973-9 (Version None)
Quarter: 2006Q2

REPORT INFORMATION
  Report Type: 
  Country: None (occurrence: None)
  Receive Date: 20060426
  Receipt Date: 20060316
  Transmission Date: 20061013
  Serious: Yes (Other)
  Sender: FDA-Public Use
  Company Number: 2006004581

PATIENT

DRUGS (2)
  1. LYRICA [Suspect]
     Indication: NEURALGIA
     Dosage: 150 MG (50 MG, 3 IN 1 D), ORAL
     Route: 048
     Dates: start: 20051004, end: 20060113
  2. METHADONE HCL [Suspect]
     Indication: DRUG DEPENDENCE

REACTIONS (1)
  - DRUG EXPOSURE DURING PREGNANCY [None]
